FAERS Safety Report 12428547 (Version 1)
Quarter: 2016Q2

REPORT INFORMATION
  Report Type: Report from Study
  Country: US (occurrence: US)
  Receive Date: 20160602
  Receipt Date: 20160602
  Transmission Date: 20160815
  Serious: Yes (Other)
  Sender: FDA-Public Use
  Company Number: US-ROCHE-1661609

PATIENT

DRUGS (2)
  1. BEVACIZUMAB [Suspect]
     Active Substance: BEVACIZUMAB
     Indication: AGE-RELATED MACULAR DEGENERATION
  2. BEVACIZUMAB [Suspect]
     Active Substance: BEVACIZUMAB
     Indication: CHOROIDAL NEOVASCULARISATION
     Route: 050

REACTIONS (7)
  - Cerebrovascular accident [Unknown]
  - Uveitis [Unknown]
  - Endophthalmitis [Unknown]
  - Off label use [Unknown]
  - Dry age-related macular degeneration [Unknown]
  - Myocardial infarction [Unknown]
  - Retinal detachment [Unknown]
